FAERS Safety Report 4436252-1 (Version None)
Quarter: 2004Q3

REPORT INFORMATION
  Report Type: 
  Country: None (occurrence: None)
  Receive Date: 20040830
  Receipt Date: 20040611
  Transmission Date: 20050211
  Serious: Yes (Other)
  Sender: FDA-Public Use
  Company Number: US-BRISTOL-MYERS SQUIBB COMPANY-12613378

PATIENT
  Age: 58 Year
  Sex: Female
  Weight: 73 kg

DRUGS (2)
  1. ERBITUX [Suspect]
     Dosage: INTERRUPED 27-MAY-2004.
     Route: 042
     Dates: start: 20040514, end: 20040514
  2. BENADRYL [Concomitant]
     Indication: PREMEDICATION
     Route: 042
     Dates: start: 20040514, end: 20040514

REACTIONS (8)
  - DIARRHOEA [None]
  - DRY SKIN [None]
  - DYSPNOEA [None]
  - EYE SWELLING [None]
  - PAIN OF SKIN [None]
  - RASH ERYTHEMATOUS [None]
  - SKIN TIGHTNESS [None]
  - WHEEZING [None]
